FAERS Safety Report 15899851 (Version 2)
Quarter: 2019Q1

REPORT INFORMATION
  Report Type: Spontaneous
  Country: US (occurrence: US)
  Receive Date: 20190201
  Receipt Date: 20190307
  Transmission Date: 20190417
  Serious: Yes (Other)
  Sender: FDA-Public Use
  Company Number: US-009507513-1901USA010120

PATIENT
  Age: 18 Year
  Sex: Female
  Weight: 62.25 kg

DRUGS (3)
  1. VISTARIL [Concomitant]
     Active Substance: HYDROXYZINE PAMOATE
     Indication: ANXIETY
     Dosage: 25 MILLIGRAM, BID
     Route: 048
     Dates: start: 20180731
  2. WELLBUTRIN [Concomitant]
     Active Substance: BUPROPION HYDROCHLORIDE
     Indication: DEPRESSION
     Dosage: 150 MILLIGRAM, HS, PO
     Route: 048
     Dates: start: 20180731
  3. NEXPLANON [Suspect]
     Active Substance: ETONOGESTREL
     Indication: CONTRACEPTION
     Dosage: 1 TRANSDERMAL IMPLANT EVERY 3 YEARS
     Route: 059
     Dates: start: 20180823, end: 20190124

REACTIONS (8)
  - Tachycardia [Recovered/Resolved]
  - Influenza [Unknown]
  - Seizure [Recovered/Resolved]
  - Syncope [Recovered/Resolved]
  - Dyspareunia [Unknown]
  - Seizure [Recovered/Resolved]
  - Pallor [Recovered/Resolved]
  - Vaginal haemorrhage [Unknown]

NARRATIVE: CASE EVENT DATE: 20180823
